FAERS Safety Report 6119366 (Version 33)
Quarter: 2013Q3

REPORT INFORMATION
  Report Type: Spontaneous
  Country: US (occurrence: US)
  Receive Date: 20060831
  Receipt Date: 20130917
  Transmission Date: 20140515
  Serious: Yes (Other)
  Sender: FDA-Public Use
  Company Number: PHEH2006US10885

PATIENT
  Age: 63 Year
  Sex: Female
  Weight: 51.25 kg

DRUGS (63)
  1. CHLORHEXIDINE [Concomitant]
  2. DIFLUNISAL [Concomitant]
  3. CLOBETASOL [Concomitant]
  4. DETROL                                  /USA/ [Concomitant]
  5. ACTIVELLA [Concomitant]
  6. AMOXICILLIN [Concomitant]
  7. CITALOPRAM [Concomitant]
  8. EFEXOR XR [Concomitant]
  9. CLARITHROMYCIN [Concomitant]
  10. AZITHROMYCIN [Concomitant]
  11. AVELOX [Concomitant]
  12. NASONEX [Concomitant]
  13. VENLAFAXINE HYDROCHLORIDE [Concomitant]
  14. ESTRADIOL + NORETHISTERONE ACETATE [Concomitant]
  15. POLYETHYLENE GLYCOL [Concomitant]
  16. PROZAC [Concomitant]
  17. MACROBID [Concomitant]
  18. ACETAMINOPHEN W/CODEINE [Concomitant]
  19. PERIOGARD [Concomitant]
  20. OXYCODONE/APAP [Concomitant]
  21. ALLEGRA [Concomitant]
  22. HYDROCORTISONE [Concomitant]
  23. BENADRYL ^ACHE^ [Concomitant]
  24. EVISTA [Concomitant]
  25. PERIDEX [Concomitant]
  26. NYSTATIN [Concomitant]
  27. ATIVAN [Concomitant]
  28. PERCOCET [Concomitant]
  29. PROVERA [Concomitant]
  30. VINCRISTINE + ADRIAMYCIN + DEXAMETHASONE [Concomitant]
  31. DECADRON                                /CAN/ [Concomitant]
  32. CYTOXAN [Concomitant]
  33. HORMONES [Concomitant]
  34. INTERFERON [Concomitant]
  35. CYCLOPHOSPHAMIDE [Concomitant]
  36. MESNA [Concomitant]
  37. ACYCLOVIR [Concomitant]
  38. CIPROFLOXACIN [Concomitant]
  39. FOLATE SODIUM [Concomitant]
  40. FERROUS SULFATE [Concomitant]
  41. MULTIVITAMIN [Concomitant]
  42. VITAMIN E [Concomitant]
  43. PAMIDRONATE DISODIUM [Concomitant]
     Dosage: 90 MG,
  44. FAMCICLOVIR [Concomitant]
     Dosage: 500 MG, TID
     Route: 048
  45. AXID [Concomitant]
     Dosage: 150 MG, QD
     Route: 048
  46. COMPAZINE [Concomitant]
     Dosage: 10 MG, Q6H,
  47. BACTRIM [Concomitant]
  48. ARANESP [Concomitant]
  49. AREDIA [Suspect]
     Indication: PLASMA CELL MYELOMA
     Dosage: 90 MG, QMO
     Route: 042
     Dates: start: 19990210, end: 20011228
  50. AREDIA [Suspect]
     Route: 042
     Dates: end: 2003
  51. ZOMETA [Suspect]
     Indication: PLASMA CELL MYELOMA
     Dosage: 4 MG, QMO
     Route: 042
     Dates: start: 20020402, end: 20031111
  52. CALCIUM [Concomitant]
  53. IRON [Concomitant]
  54. ZITHROMAX Z-PACK [Concomitant]
  55. PREDNISONE [Concomitant]
  56. PREMARIN TABLET [Concomitant]
  57. CELEXA [Concomitant]
  58. MEDROXYPROGESTERONE [Concomitant]
  59. CLINDAMYCIN HYDROCHLORIDE [Concomitant]
  60. PENLAC [Concomitant]
  61. IMITREX ^GLAXO^ [Concomitant]
  62. LEVAQUIN [Concomitant]
  63. FEOGEN FA [Concomitant]

REACTIONS (112)
  - Femur fracture [Unknown]
  - Fall [Unknown]
  - Osteoporosis [Unknown]
  - Impaired healing [Unknown]
  - Osteonecrosis of jaw [Unknown]
  - General physical health deterioration [Unknown]
  - Pain [Unknown]
  - Anxiety [Unknown]
  - Decreased interest [Unknown]
  - Tooth disorder [Unknown]
  - Loose tooth [Unknown]
  - Vitreous floaters [Unknown]
  - Photopsia [Unknown]
  - Posterior capsule opacification [Unknown]
  - Visual impairment [Unknown]
  - Osteoradionecrosis [Unknown]
  - Bone disorder [Unknown]
  - Skin papilloma [Unknown]
  - Visual acuity reduced [Unknown]
  - Sensitivity of teeth [Unknown]
  - Osteomyelitis [Unknown]
  - Lip swelling [Unknown]
  - Secondary sequestrum [Unknown]
  - Oral cavity fistula [Unknown]
  - Infection [Unknown]
  - Mouth haemorrhage [Unknown]
  - Sinusitis [Unknown]
  - Haematuria [Unknown]
  - Hypertonic bladder [Unknown]
  - Dysgeusia [Unknown]
  - Parosmia [Unknown]
  - Haematoma [Unknown]
  - Rhinitis allergic [Unknown]
  - Onychomycosis [Unknown]
  - Foot deformity [Unknown]
  - Hyperkeratosis [Unknown]
  - Nasal obstruction [Unknown]
  - Endometrial hyperplasia [Unknown]
  - Large intestine polyp [Unknown]
  - Road traffic accident [Unknown]
  - Meniscus injury [Unknown]
  - Joint injury [Unknown]
  - Plasma cell myeloma [Unknown]
  - Cognitive disorder [Unknown]
  - Spinal osteoarthritis [Unknown]
  - Spinal disorder [Unknown]
  - Cerebral atrophy [Unknown]
  - Nervous system disorder [Unknown]
  - Bone density increased [Unknown]
  - Osteolysis [Unknown]
  - Uterine mass [Unknown]
  - Skin mass [Unknown]
  - Iron deficiency [Unknown]
  - Ventricular hypertrophy [Unknown]
  - Nocturia [Unknown]
  - Contusion [Unknown]
  - Anaemia [Unknown]
  - Vertebral osteophyte [Unknown]
  - Dyspepsia [Unknown]
  - Bronchitis [Unknown]
  - Osteopenia [Unknown]
  - Hepatic cyst [Unknown]
  - Marrow hyperplasia [Unknown]
  - Tooth fracture [Unknown]
  - Dry mouth [Unknown]
  - Tooth deposit [Unknown]
  - Exposed bone in jaw [Unknown]
  - Colon adenoma [Unknown]
  - Dysphagia [Unknown]
  - Carotid artery stenosis [Unknown]
  - Dental caries [Unknown]
  - Compression fracture [Unknown]
  - Lordosis [Unknown]
  - Neoplasm [Unknown]
  - Adenomyosis [Unknown]
  - Herpes zoster [Unknown]
  - Uterine leiomyoma [Unknown]
  - Osteonecrosis [Unknown]
  - Cervical cyst [Unknown]
  - Dyspnoea exertional [Unknown]
  - Cellulitis [Unknown]
  - Chest wall abscess [Unknown]
  - Paraproteinaemia [Unknown]
  - Dermal cyst [Unknown]
  - Urinary incontinence [Unknown]
  - Syncope [Unknown]
  - Hepatic lesion [Unknown]
  - Kyphosis [Unknown]
  - Arteriosclerosis coronary artery [Unknown]
  - Pneumonia [Unknown]
  - Pleural effusion [Unknown]
  - Immunodeficiency [Unknown]
  - Tinnitus [Unknown]
  - Balance disorder [Unknown]
  - Sleep disorder [Unknown]
  - Patella fracture [Unknown]
  - Pharyngitis [Unknown]
  - Haemorrhoids [Unknown]
  - Rib fracture [Unknown]
  - Ecchymosis [Unknown]
  - Nodal osteoarthritis [Unknown]
  - Eustachian tube dysfunction [Unknown]
  - Neutropenia [Unknown]
  - Thrombocytopenia [Unknown]
  - Melanocytic naevus [Unknown]
  - Insomnia [Unknown]
  - Calcinosis [Unknown]
  - Deafness [Unknown]
  - Senile dementia [Unknown]
  - Skin cancer [Unknown]
  - Second primary malignancy [Unknown]
  - Actinic keratosis [Unknown]
